FAERS Safety Report 21380633 (Version 1)
Quarter: 2022Q3

REPORT INFORMATION
  Report Type: Spontaneous
  Country: US (occurrence: None)
  Receive Date: 20220923
  Receipt Date: 20220923
  Transmission Date: 20221027
  Serious: Yes (Hospitalization)
  Sender: FDA-Public Use
  Company Number: None

PATIENT
  Sex: Female

DRUGS (1)
  1. EVEROLIMUS [Suspect]
     Active Substance: EVEROLIMUS
     Indication: Breast cancer
     Dosage: 75MG ONCE DAILY ORAL
     Route: 048
     Dates: start: 20220513

REACTIONS (5)
  - Lymphoma [None]
  - Malignant neoplasm progression [None]
  - Muscular weakness [None]
  - Abdominal distension [None]
  - General physical health deterioration [None]
